FAERS Safety Report 23045264 (Version 1)
Quarter: 2023Q4

REPORT INFORMATION
  Report Type: Spontaneous
  Country: US (occurrence: US)
  Receive Date: 20231009
  Receipt Date: 20231009
  Transmission Date: 20240109
  Serious: Yes (Other)
  Sender: FDA-Public Use
  Company Number: US-SA-SAC20231006000861

PATIENT
  Age: 61 Year
  Sex: Female
  Weight: 75.7 kg

DRUGS (1)
  1. DUPIXENT [Suspect]
     Active Substance: DUPILUMAB
     Indication: Dermatitis atopic
     Dosage: 300 MG QOW
     Route: 058
     Dates: start: 2021, end: 2023

REACTIONS (3)
  - Eye infection fungal [Recovered/Resolved]
  - Ulcerative keratitis [Recovered/Resolved]
  - Eye infection bacterial [Recovered/Resolved]

NARRATIVE: CASE EVENT DATE: 20230501
